FAERS Safety Report 8167968-1 (Version None)
Quarter: 2012Q1

REPORT INFORMATION
  Report Type: 
  Country: None (occurrence: None)
  Receive Date: 20120227
  Receipt Date: 20120222
  Transmission Date: 20120608
  Serious: Yes (Hospitalization)
  Sender: FDA-Public Use
  Company Number: DE-GLAXOSMITHKLINE-B0770311A

PATIENT
  Sex: Female
  Weight: 75 kg

DRUGS (3)
  1. DOXORUBICIN HCL [Suspect]
     Indication: BREAST CANCER
     Dosage: 111MG EVERY 3 WEEKS
     Route: 042
     Dates: start: 20111124
  2. PACLITAXEL [Suspect]
     Indication: BREAST CANCER
     Dosage: 324MG EVERY 3 WEEKS
     Route: 042
     Dates: start: 20111124
  3. LAPATINIB [Suspect]
     Indication: BREAST CANCER
     Dosage: 1250MG PER DAY
     Route: 048
     Dates: start: 20111124

REACTIONS (2)
  - SEROMA [None]
  - INJECTION SITE REACTION [None]
